FAERS Safety Report 15758202 (Version 1)
Quarter: 2018Q4

REPORT INFORMATION
  Report Type: Other
  Country: GB (occurrence: GB)
  Receive Date: 20181225
  Receipt Date: 20181225
  Transmission Date: 20190205
  Serious: Yes (Other)
  Sender: FDA-Public Use
  Company Number: GB-CELLTRION INC.-2018GB024675

PATIENT

DRUGS (1)
  1. RITUXIMAB (UNKNOWN) [Suspect]
     Active Substance: RITUXIMAB
     Indication: CHEMOTHERAPY
     Dosage: UNK
     Route: 065
     Dates: start: 20180820, end: 20180820

REACTIONS (5)
  - Blood pressure increased [Unknown]
  - Dyspnoea [Unknown]
  - Incorrect drug administration rate [Unknown]
  - Product preparation error [Unknown]
  - Heart rate increased [Unknown]

NARRATIVE: CASE EVENT DATE: 20180820
